FAERS Safety Report 21530540 (Version 1)
Quarter: 2022Q4

REPORT INFORMATION
  Report Type: Spontaneous
  Country: US (occurrence: None)
  Receive Date: 20221028
  Receipt Date: 20221028
  Transmission Date: 20230113
  Serious: Yes (Other)
  Sender: FDA-Public Use
  Company Number: None

PATIENT
  Sex: Female

DRUGS (1)
  1. HEPARIN [Suspect]
     Active Substance: HEPARIN SODIUM

REACTIONS (3)
  - Pancreatitis [None]
  - Heparin-induced thrombocytopenia [None]
  - Heparin-induced thrombocytopenia test positive [None]

NARRATIVE: CASE EVENT DATE: 20220121
